FAERS Safety Report 5685199-1 (Version None)
Quarter: 2008Q1

REPORT INFORMATION
  Report Type: 
  Country: None (occurrence: None)
  Receive Date: 20080328
  Receipt Date: 20080319
  Transmission Date: 20080703
  Serious: Yes (Death, Other)
  Sender: FDA-Public Use
  Company Number: JP-PFIZER INC-2008012823

PATIENT
  Sex: Female

DRUGS (5)
  1. CELECOX [Suspect]
     Indication: MUSCULOSKELETAL PAIN
     Dosage: DAILY DOSE:200MG
     Route: 048
  2. LIPLE [Concomitant]
     Indication: ARTERIOSCLEROSIS OBLITERANS
     Route: 042
  3. VOLTAREN [Concomitant]
     Route: 048
  4. PREDONINE [Concomitant]
  5. OMEPRAL [Concomitant]

REACTIONS (2)
  - ARTERIAL THROMBOSIS [None]
  - PANCYTOPENIA [None]
